FAERS Safety Report 8613266 (Version 3)
Quarter: 2012Q4

REPORT INFORMATION
  Report Type: 
  Country: US (occurrence: US)
  Receive Date: 20120613
  Receipt Date: 20121129
  Transmission Date: 20130627
  Serious: Yes (Death, Hospitalization)
  Sender: FDA-Public Use
  Company Number: US-ACTELION-A-US2012-66866

PATIENT
  Age: 77 Year
  Sex: Female

DRUGS (1)
  1. TRACLEER [Suspect]
     Indication: PULMONARY ARTERIAL HYPERTENSION
     Dosage: UNK
     Route: 048
     Dates: start: 201009

REACTIONS (5)
  - Cardiac failure [Fatal]
  - Cardiomyopathy [Fatal]
  - Cardiogenic shock [Fatal]
  - Haemorrhage [Unknown]
  - Gastrointestinal haemorrhage [Unknown]
